FAERS Safety Report 8291576-5 (Version None)
Quarter: 2012Q2

REPORT INFORMATION
  Report Type: 
  Country: None (occurrence: None)
  Receive Date: 20120417
  Receipt Date: 20120403
  Transmission Date: 20120825
  Serious: No
  Sender: FDA-Public Use
  Company Number: US-ROXANE LABORATORIES, INC.-2012-RO-00985RO

PATIENT
  Sex: Female

DRUGS (2)
  1. LEVETIRACETAM [Suspect]
     Dates: start: 20120302
  2. LEVETIRACETAM [Suspect]
     Dates: start: 20101101, end: 20101201

REACTIONS (2)
  - NIGHTMARE [None]
  - SLEEP DISORDER [None]
